FAERS Safety Report 8214857-X (Version None)
Quarter: 2012Q1

REPORT INFORMATION
  Report Type: 
  Country: None (occurrence: None)
  Receive Date: 20120313
  Receipt Date: 20120228
  Transmission Date: 20120608
  Serious: Yes (Congenital Anomaly)
  Sender: FDA-Public Use
  Company Number: VALP20120006

PATIENT

DRUGS (3)
  1. LAMOTRIGINE [Suspect]
     Indication: MATERNAL EXPOSURE DURING PREGNANCY
     Dosage: 200 MG, TRANSPLACENTAL
     Route: 063
  2. TOPIRAMATE [Suspect]
     Indication: MATERNAL EXPOSURE DURING PREGNANCY
     Dosage: 400 MG, TRANSPLACENTAL
     Route: 064
  3. VALPROIC ACID [Suspect]
     Indication: MATERNAL EXPOSURE DURING PREGNANCY
     Dosage: 500 MG, TRANSPLACENTAL
     Route: 064

REACTIONS (2)
  - SYNDACTYLY [None]
  - MATERNAL DRUGS AFFECTING FOETUS [None]
